FAERS Safety Report 9266030 (Version 1)
Quarter: 2013Q2

REPORT INFORMATION
  Report Type: Spontaneous
  Country: US (occurrence: US)
  Receive Date: 20130501
  Receipt Date: 20130501
  Transmission Date: 20140414
  Serious: Yes (Hospitalization)
  Sender: FDA-Public Use
  Company Number: US-B.I. PHARMACEUTICALS,INC./RIDGEFIELD-2013-BI-11902BP

PATIENT
  Age: 9 Decade
  Sex: Female

DRUGS (3)
  1. PRADAXA [Suspect]
     Indication: CEREBROVASCULAR ACCIDENT PROPHYLAXIS
     Dosage: 300 MG
     Route: 048
     Dates: start: 201303, end: 201303
  2. COREG [Concomitant]
     Route: 048
  3. LASIX [Concomitant]
     Route: 048

REACTIONS (1)
  - Spinal haematoma [Recovered/Resolved with Sequelae]
